FAERS Safety Report 8938540 (Version 4)
Quarter: 2013Q1

REPORT INFORMATION
  Report Type: Spontaneous
  Country: JP (occurrence: JP)
  Receive Date: 20121203
  Receipt Date: 20130220
  Transmission Date: 20140127
  Serious: Yes (Other)
  Sender: FDA-Public Use
  Company Number: PHHY2012JP110242

PATIENT
  Age: 3 Year
  Sex: Female

DRUGS (3)
  1. SANDIMMUN [Suspect]
     Indication: HISTIOCYTOSIS HAEMATOPHAGIC
     Route: 048
  2. DEXAMETHASONE [Concomitant]
     Indication: HISTIOCYTOSIS HAEMATOPHAGIC
  3. ETOPOSIDE [Concomitant]
     Indication: HISTIOCYTOSIS HAEMATOPHAGIC

REACTIONS (6)
  - Rhabdomyolysis [Unknown]
  - Pericardial effusion [Unknown]
  - Cardiac failure acute [Recovering/Resolving]
  - Mitral valve incompetence [Unknown]
  - Tricuspid valve incompetence [Unknown]
  - Cardiomyopathy [Unknown]
